FAERS Safety Report 5981670-3 (Version None)
Quarter: 2008Q4

REPORT INFORMATION
  Report Type: 
  Country: None (occurrence: None)
  Receive Date: 20081205
  Receipt Date: 20081127
  Transmission Date: 20090506
  Serious: Yes (Disabling)
  Sender: FDA-Public Use
  Company Number: FR-ELI_LILLY_AND_COMPANY-FR200811006334

PATIENT
  Sex: Male

DRUGS (2)
  1. ZYPREXA [Suspect]
     Indication: HUNTINGTON'S CHOREA
     Dosage: 5 MG, DAILY (1/D)
     Route: 048
     Dates: start: 20080425, end: 20080526
  2. ZYPREXA [Suspect]
     Dosage: 5 MG, DAILY (1/D)
     Route: 048
     Dates: start: 20080609, end: 20080601

REACTIONS (3)
  - ARTHRITIS [None]
  - OFF LABEL USE [None]
  - POLYARTHRITIS [None]
